FAERS Safety Report 16774516 (Version 2)
Quarter: 2020Q1

REPORT INFORMATION
  Report Type: Report from Study
  Country: CA (occurrence: CA)
  Receive Date: 20190905
  Receipt Date: 20200211
  Transmission Date: 20200409
  Serious: Yes (Death, Hospitalization, Other)
  Sender: FDA-Public Use
  Company Number: CA-ORION CORPORATION ORION PHARMA-TREX2019-3209

PATIENT
  Age: 87 Year
  Sex: Female

DRUGS (3)
  1. HUMIRA [Suspect]
     Active Substance: ADALIMUMAB
     Indication: RHEUMATOID ARTHRITIS
     Dosage: CYCLIC
     Route: 058
     Dates: start: 20071121, end: 2015
  2. CELEBREX [Concomitant]
     Active Substance: CELECOXIB
     Route: 065
     Dates: start: 2002
  3. METHOTREXATE (TRADE NAME UNKNOWN) [Suspect]
     Active Substance: METHOTREXATE
     Indication: PRODUCT USED FOR UNKNOWN INDICATION
     Route: 048
     Dates: start: 20020502, end: 2015

REACTIONS (6)
  - Pneumonitis [Fatal]
  - Respiratory tract infection [Fatal]
  - Pulmonary mass [Unknown]
  - Dyspnoea [Fatal]
  - General physical health deterioration [Fatal]
  - Bronchiectasis [Unknown]

NARRATIVE: CASE EVENT DATE: 2015
